FAERS Safety Report 12562762 (Version 1)
Quarter: 2016Q3

REPORT INFORMATION
  Report Type: Spontaneous
  Country: US (occurrence: US)
  Receive Date: 20160715
  Receipt Date: 20160715
  Transmission Date: 20161109
  Serious: No
  Sender: FDA-Public Use
  Company Number: US-IGSA-GTI003704

PATIENT
  Age: 31 Year
  Sex: Female
  Weight: 98 kg

DRUGS (7)
  1. HYPERRAB S/D [Suspect]
     Active Substance: HUMAN RABIES VIRUS IMMUNE GLOBULIN
     Indication: ANIMAL BITE
     Route: 030
     Dates: start: 20150908, end: 20150908
  2. HYPERRAB S/D [Suspect]
     Active Substance: HUMAN RABIES VIRUS IMMUNE GLOBULIN
     Indication: ANIMAL BITE
     Route: 030
     Dates: start: 20150908, end: 20150908
  3. RABIES VACCINE [Suspect]
     Active Substance: RABIES VACCINE
     Indication: ANIMAL BITE
     Dates: start: 20150915, end: 20150915
  4. HYPERRAB S/D [Suspect]
     Active Substance: HUMAN RABIES VIRUS IMMUNE GLOBULIN
     Indication: ANIMAL BITE
     Route: 030
     Dates: start: 20150908, end: 20150908
  5. RABIES VACCINE [Suspect]
     Active Substance: RABIES VACCINE
     Indication: ANIMAL BITE
     Dates: start: 20150911, end: 20150911
  6. RABIES VACCINE [Suspect]
     Active Substance: RABIES VACCINE
     Indication: ANIMAL BITE
     Dates: start: 20150922, end: 20150922
  7. RABIES VACCINE [Suspect]
     Active Substance: RABIES VACCINE
     Indication: ANIMAL BITE
     Dates: start: 20150908, end: 20150908

REACTIONS (5)
  - Pain in extremity [Recovering/Resolving]
  - Pain in extremity [Recovered/Resolved]
  - Arthralgia [Recovering/Resolving]
  - Musculoskeletal pain [None]
  - Joint stiffness [Recovering/Resolving]

NARRATIVE: CASE EVENT DATE: 201509
